FAERS Safety Report 5030525-X (Version None)
Quarter: 2006Q2

REPORT INFORMATION
  Report Type: 
  Country: None (occurrence: None)
  Receive Date: 20060614
  Receipt Date: 20060529
  Transmission Date: 20061013
  Serious: Yes (Other)
  Sender: FDA-Public Use
  Company Number: 6022848

PATIENT
  Age: 63 Year
  Sex: Male

DRUGS (4)
  1. BISOPROLOL FUMARATE [Suspect]
     Indication: MYOCARDIAL ISCHAEMIA
     Dosage: 5 MG (5 MG, 1 IN 1 D)
     Route: 048
     Dates: start: 20060316, end: 20060320
  2. ASPIRIN [Concomitant]
  3. COSAAR (LOSARTAN POTASSIUM) [Concomitant]
  4. SIMCORA (SIMVASTATIN) [Concomitant]

REACTIONS (3)
  - DRUG INEFFECTIVE [None]
  - HYPERTENSION [None]
  - TACHYCARDIA [None]
